FAERS Safety Report 12708758 (Version 4)
Quarter: 2017Q1

REPORT INFORMATION
  Report Type: Report from Study
  Country: US (occurrence: US)
  Receive Date: 20160901
  Receipt Date: 20170303
  Transmission Date: 20170428
  Serious: Yes (Other)
  Sender: FDA-Public Use
  Company Number: US-BAYER-2016-151812

PATIENT
  Age: 69 Year
  Sex: Female
  Weight: 65.31 kg

DRUGS (6)
  1. ADEMPAS [Suspect]
     Active Substance: RIOCIGUAT
     Indication: PULMONARY HYPERTENSION
     Dosage: 0.5 MG, TID
     Route: 048
  2. ADEMPAS [Suspect]
     Active Substance: RIOCIGUAT
     Indication: PULMONARY HYPERTENSION
     Dosage: 0.5 MG, TID
     Route: 048
  3. UPTRAVI [Concomitant]
     Active Substance: SELEXIPAG
     Dosage: 800 ?G, BID
  4. XARELTO [Concomitant]
     Active Substance: RIVAROXABAN
     Dosage: UNK
  5. ADEMPAS [Suspect]
     Active Substance: RIOCIGUAT
     Indication: PULMONARY HYPERTENSION
     Dosage: UNK
     Dates: start: 20140115
  6. ADEMPAS [Suspect]
     Active Substance: RIOCIGUAT
     Indication: PULMONARY HYPERTENSION
     Dosage: 0.5 MG, TID
     Route: 048

REACTIONS (16)
  - Gastrooesophageal reflux disease [None]
  - Hyperhidrosis [None]
  - Headache [None]
  - Myalgia [Not Recovered/Not Resolved]
  - Insomnia [None]
  - Pain in jaw [None]
  - Fall [Unknown]
  - Upper limb fracture [Unknown]
  - Tenderness [None]
  - Dyspepsia [None]
  - Fibromyalgia [None]
  - Arthritis [None]
  - Myalgia [None]
  - Feeling hot [None]
  - Arthralgia [None]
  - Arthralgia [Not Recovered/Not Resolved]
